FAERS Safety Report 11202939 (Version 1)
Quarter: 2015Q2

REPORT INFORMATION
  Report Type: Spontaneous
  Country: US (occurrence: None)
  Receive Date: 20150608
  Receipt Date: 20150608
  Transmission Date: 20150821
  Serious: No
  Sender: FDA-Public Use
  Company Number: 2015TUS002450

PATIENT
  Sex: Female

DRUGS (6)
  1. BRINTELLIX [Suspect]
     Active Substance: VORTIOXETINE HYDROBROMIDE
     Indication: MAJOR DEPRESSION
     Route: 048
     Dates: start: 20150223, end: 20150224
  2. LIPITOR [Concomitant]
     Active Substance: ATORVASTATIN CALCIUM
  3. KLONOPIN [Concomitant]
     Active Substance: CLONAZEPAM
  4. WELLBUTRIN [Concomitant]
     Active Substance: BUPROPION HYDROCHLORIDE
  5. ASPIRIN (ACETYLSALICYLIC ACID) [Concomitant]
     Active Substance: ASPIRIN
  6. OMEPRAZOLE (OMEPRAZOLE) [Concomitant]
     Active Substance: OMEPRAZOLE

REACTIONS (1)
  - Nausea [None]

NARRATIVE: CASE EVENT DATE: 20150223
